FAERS Safety Report 10994194 (Version 3)
Quarter: 2015Q3

REPORT INFORMATION
  Report Type: Spontaneous
  Country: CH (occurrence: CH)
  Receive Date: 20150407
  Receipt Date: 20150710
  Transmission Date: 20151125
  Serious: Yes (Death, Hospitalization, Other)
  Sender: FDA-Public Use
  Company Number: CH-PFIZER INC-2015114823

PATIENT
  Age: 68 Year
  Sex: Female
  Weight: 61 kg

DRUGS (24)
  1. VI-DE 3 [Concomitant]
     Dosage: 40 GTT, 1X/DAY
  2. B12 ANKERMANN [Concomitant]
     Dosage: 1 MG, 1X/DAY
  3. AURORIX [Suspect]
     Active Substance: MOCLOBEMIDE
     Dosage: 300 MG, 1X/DAY
     Route: 065
  4. MOVICOL [Concomitant]
     Active Substance: POLYETHYLENE GLYCOL 3350\POTASSIUM CHLORIDE\SODIUM BICARBONATE\SODIUM CHLORIDE
     Dosage: 1 DF, 2X/DAY
  5. SELIPRAN [Suspect]
     Active Substance: PRAVASTATIN SODIUM
     Dosage: 40 MG, 1X/DAY
     Route: 065
  6. SEROQUEL [Suspect]
     Active Substance: QUETIAPINE FUMARATE
     Dosage: 25 MG, 1X/DAY
     Route: 065
  7. IMOVANE [Concomitant]
     Active Substance: ZOPICLONE
     Dosage: 7.5 MG, 2X/DAY
  8. REDORMIN [Concomitant]
     Dosage: 2 TABLETS/24H
  9. SERESTA [Concomitant]
     Active Substance: OXAZEPAM
     Dosage: 15 MG, 1X/DAY (1 TABLET/24H)
  10. ARKOCAPS [Concomitant]
     Indication: URINARY TRACT DISORDER
     Dosage: UNK
  11. LYRICA [Suspect]
     Active Substance: PREGABALIN
     Dosage: 100 MG, 1X/DAY
     Route: 065
  12. DAFALGAN [Suspect]
     Active Substance: ACETAMINOPHEN
     Dosage: 500 MG 8 TIMES A DAY
     Route: 065
  13. NOVALGIN [Interacting]
     Active Substance: METAMIZOLE SODIUM
     Dosage: 0.5 G 8 TIMES A DAY
     Route: 065
  14. METOJECT [Interacting]
     Active Substance: METHOTREXATE SODIUM
     Indication: RHEUMATOID ARTHRITIS
     Dosage: 10 MG, WEEKLY ON THURSDAY
     Route: 030
     Dates: start: 201501, end: 20150122
  15. BRUFEN [Interacting]
     Active Substance: IBUPROFEN
     Indication: PAIN
     Dosage: 400 MG, 3X/DAY
     Route: 065
  16. EUTHYROX [Concomitant]
     Active Substance: LEVOTHYROXINE SODIUM
     Dosage: 75 ?G, 1X/DAY
  17. ALUCOL [Concomitant]
     Active Substance: ALUMINUM HYDROXIDE\MAGNESIUM HYDROXIDE
     Dosage: UNK
  18. DUROGESIC [Concomitant]
     Active Substance: FENTANYL
     Dosage: 1 DF FOR 72 HOURS
  19. MOTILIUM LINGUAL [Concomitant]
     Dosage: 10 MG, 3X/DAY
  20. PANTOZOL [Interacting]
     Active Substance: PANTOPRAZOLE SODIUM
     Dosage: 40 MG, 2X/DAY
     Route: 065
  21. VITANGO [Concomitant]
     Dosage: 200 MG, 2X/DAY
  22. LYRICA [Suspect]
     Active Substance: PREGABALIN
     Dosage: 25 MG, 1X/DAY
     Route: 065
  23. ASPIRIN CARDIO [Interacting]
     Active Substance: ASPIRIN
     Dosage: 100 MG, 1X/DAY
     Route: 048
  24. ACIDUM FOLICUM [Concomitant]
     Active Substance: FOLIC ACID
     Dosage: 5 MG, 1X/DAY

REACTIONS (19)
  - Myelodysplastic syndrome [Unknown]
  - Pancytopenia [Fatal]
  - Bone marrow failure [Unknown]
  - Pyelonephritis [Fatal]
  - Drug interaction [Unknown]
  - Vomiting [Unknown]
  - Asthenia [Unknown]
  - Pulmonary oedema [Unknown]
  - Oral herpes [Unknown]
  - Respiratory disorder [Unknown]
  - Hypoalbuminaemia [Unknown]
  - Toxicity to various agents [Recovered/Resolved]
  - Cachexia [Unknown]
  - Sepsis [Fatal]
  - Escherichia infection [Fatal]
  - Cardiac failure [Unknown]
  - Pleural effusion [Unknown]
  - Immunosuppression [Fatal]
  - Diarrhoea [Unknown]

NARRATIVE: CASE EVENT DATE: 20150123
